FAERS Safety Report 6798336-2 (Version None)
Quarter: 2010Q2

REPORT INFORMATION
  Report Type: 
  Country: None (occurrence: None)
  Receive Date: 20100623
  Receipt Date: 20100608
  Transmission Date: 20101027
  Serious: Yes (Other)
  Sender: FDA-Public Use
  Company Number: 2010AL001148

PATIENT
  Age: 71 Year
  Sex: Male

DRUGS (1)
  1. SODIUM FLUORIDE TABLETS 1.0 MG (ATLLC) (SODIUM FLUORIDE) [Suspect]
     Indication: DENTAL CARE
     Dosage: 15 ML; QD; DENT
     Route: 004

REACTIONS (5)
  - ANGIOEDEMA [None]
  - BURNING SENSATION [None]
  - CAUSTIC INJURY [None]
  - GINGIVAL PAIN [None]
  - STOMATITIS [None]
